FAERS Safety Report 15175658 (Version 2)
Quarter: 2018Q3

REPORT INFORMATION
  Report Type: Report from Study
  Country: US (occurrence: US)
  Receive Date: 20180720
  Receipt Date: 20180809
  Transmission Date: 20181010
  Serious: No
  Sender: FDA-Public Use
  Company Number: US-ALEXION PHARMACEUTICALS INC.-A201809284

PATIENT
  Sex: Male
  Weight: 103.86 kg

DRUGS (1)
  1. STRENSIQ [Suspect]
     Active Substance: ASFOTASE ALFA
     Indication: PRODUCT USED FOR UNKNOWN INDICATION
     Dosage: UNK
     Route: 065

REACTIONS (4)
  - Blood alkaline phosphatase increased [Unknown]
  - Glycosylated haemoglobin increased [Recovering/Resolving]
  - Nausea [Unknown]
  - Weight decreased [Unknown]
